FAERS Safety Report 11321960 (Version 2)
Quarter: 2015Q3

REPORT INFORMATION
  Report Type: Report from Study
  Country: CN (occurrence: CN)
  Receive Date: 20150729
  Receipt Date: 20150910
  Transmission Date: 20151125
  Serious: Yes (Death)
  Sender: FDA-Public Use
  Company Number: CN-SA-2015SA110062

PATIENT
  Age: 60 Year
  Sex: Female
  Weight: 57 kg

DRUGS (2)
  1. ELOXATIN [Suspect]
     Active Substance: OXALIPLATIN
     Route: 065
     Dates: start: 20150706
  2. CAPECITABINE. [Suspect]
     Active Substance: CAPECITABINE
     Route: 065

REACTIONS (1)
  - Death [Fatal]

NARRATIVE: CASE EVENT DATE: 20150716
